FAERS Safety Report 6746244-5 (Version None)
Quarter: 2010Q2

REPORT INFORMATION
  Report Type: 
  Country: None (occurrence: None)
  Receive Date: 20100528
  Receipt Date: 20091119
  Transmission Date: 20101027
  Serious: No
  Sender: FDA-Public Use
  Company Number: US-ASTRAZENECA-2009SE27632

PATIENT
  Age: 772 Month
  Sex: Male

DRUGS (5)
  1. PRILOSEC [Suspect]
     Route: 048
     Dates: end: 20091001
  2. PLAVIX [Suspect]
     Indication: MYOCARDIAL INFARCTION
     Route: 048
     Dates: start: 20070101, end: 20091001
  3. PLAVIX [Suspect]
     Indication: STENT PLACEMENT
     Route: 048
     Dates: start: 20070101, end: 20091001
  4. PLAVIX [Suspect]
     Route: 048
     Dates: start: 20091001
  5. PLAVIX [Suspect]
     Route: 048
     Dates: start: 20091001

REACTIONS (3)
  - DYSPEPSIA [None]
  - GASTRIC ULCER [None]
  - WRONG TECHNIQUE IN DRUG USAGE PROCESS [None]
